FAERS Safety Report 12056650 (Version 1)
Quarter: 2016Q1

REPORT INFORMATION
  Report Type: Report from Study
  Country: US (occurrence: US)
  Receive Date: 20160209
  Receipt Date: 20160209
  Transmission Date: 20160526
  Serious: Yes (Hospitalization)
  Sender: FDA-Public Use
  Company Number: US-ACTELION-A-NJ2015-129217

PATIENT
  Age: 78 Year
  Sex: Female

DRUGS (1)
  1. MACITENTAN [Suspect]
     Active Substance: MACITENTAN
     Indication: PULMONARY ARTERIAL HYPERTENSION
     Dosage: 10 MG, QD
     Route: 048
     Dates: start: 20151130

REACTIONS (10)
  - Renal disorder [Unknown]
  - Dyspnoea [Unknown]
  - Urinary tract infection [Unknown]
  - Fluid retention [Unknown]
  - Asthenia [Unknown]
  - Electrolyte imbalance [Unknown]
  - Blood potassium abnormal [Unknown]
  - Fatigue [Unknown]
  - Blood magnesium abnormal [Unknown]
  - Cardiac failure congestive [Unknown]
